FAERS Safety Report 12074504 (Version 1)
Quarter: 2016Q1

REPORT INFORMATION
  Report Type: Spontaneous
  Country: US (occurrence: US)
  Receive Date: 20160212
  Receipt Date: 20160212
  Transmission Date: 20160526
  Serious: Yes (Hospitalization)
  Sender: FDA-Public Use
  Company Number: US-EDISONTHERAPEUTICS-2016-US-000002

PATIENT
  Age: 31 Year
  Sex: Female

DRUGS (8)
  1. REMIFENTANIL [Concomitant]
     Active Substance: REMIFENTANIL
  2. METHERGINE [Suspect]
     Active Substance: METHYLERGONOVINE MALEATE
     Dosage: 0.2 ??G
     Route: 030
  3. SUCCINYLCHOLINE [Concomitant]
     Active Substance: SUCCINYLCHOLINE
  4. ISOFLURAN [Concomitant]
  5. FENTANYL. [Concomitant]
     Active Substance: FENTANYL
  6. OXYTOCIN. [Concomitant]
     Active Substance: OXYTOCIN
  7. ETOMIDATE. [Concomitant]
     Active Substance: ETOMIDATE
  8. DOBUTAMINE [Concomitant]
     Active Substance: DOBUTAMINE\DOBUTAMINE HYDROCHLORIDE

REACTIONS (1)
  - Pulmonary hypertensive crisis [Unknown]
